FAERS Safety Report 7430786-3 (Version None)
Quarter: 2011Q2

REPORT INFORMATION
  Report Type: 
  Country: None (occurrence: None)
  Receive Date: 20110421
  Receipt Date: 20110418
  Transmission Date: 20111010
  Serious: Yes (Hospitalization)
  Sender: FDA-Public Use
  Company Number: BE-ABBOTT-11P-013-0718289-00

PATIENT

DRUGS (1)
  1. LUCRIN DEPOT 11.25 MG [Suspect]
     Indication: PRODUCT USED FOR UNKNOWN INDICATION

REACTIONS (2)
  - APHASIA [None]
  - ACTIVITIES OF DAILY LIVING IMPAIRED [None]
